FAERS Safety Report 20717871 (Version 2)
Quarter: 2023Q1

REPORT INFORMATION
  Report Type: Spontaneous
  Country: US (occurrence: US)
  Receive Date: 20220418
  Receipt Date: 20230317
  Transmission Date: 20230417
  Serious: No
  Sender: FDA-Public Use
  Company Number: US-BRISTOL-MYERS SQUIBB COMPANY-2022-016137

PATIENT
  Age: 77 Year
  Sex: Female
  Weight: 68.9 kg

DRUGS (2)
  1. REVLIMID [Suspect]
     Active Substance: LENALIDOMIDE
     Indication: Plasma cell myeloma
     Dosage: 5 MILLIGRAM
     Route: 048
     Dates: start: 20210120
  2. REVLIMID [Suspect]
     Active Substance: LENALIDOMIDE
     Indication: Plasma cell myeloma
     Dosage: FREQ - DAILY FOR 21DAYS
     Route: 048

REACTIONS (5)
  - Haemoglobin decreased [Unknown]
  - Skin exfoliation [Unknown]
  - Fatigue [Unknown]
  - Dry skin [Unknown]
  - Full blood count decreased [Unknown]
